FAERS Safety Report 13005907 (Version 1)
Quarter: 2016Q4

REPORT INFORMATION
  Report Type: Spontaneous
  Country: AR (occurrence: AR)
  Receive Date: 20161207
  Receipt Date: 20161207
  Transmission Date: 20170207
  Serious: Yes (Hospitalization, Other)
  Sender: FDA-Public Use
  Company Number: AR-OTSUKA-2016_028462

PATIENT
  Age: 52 Year

DRUGS (2)
  1. BUSULFAN. [Suspect]
     Active Substance: BUSULFAN
     Indication: BONE MARROW TRANSPLANT
     Dosage: UNK, AT 11AM, 5PM, 11PM
     Route: 042
     Dates: start: 20161124
  2. BUSULFAN. [Suspect]
     Active Substance: BUSULFAN
     Dosage: UNK, AT 6AM
     Route: 042
     Dates: start: 20161125

REACTIONS (5)
  - Electrocardiogram abnormal [Not Recovered/Not Resolved]
  - Hypokalaemia [Not Recovered/Not Resolved]
  - Hypokalaemic syndrome [Not Recovered/Not Resolved]
  - Paralysis [Not Recovered/Not Resolved]
  - Muscular weakness [Not Recovered/Not Resolved]

NARRATIVE: CASE EVENT DATE: 20161125
